FAERS Safety Report 7416800-X (Version None)
Quarter: 2011Q1

REPORT INFORMATION
  Report Type: 
  Country: None (occurrence: None)
  Receive Date: 20110302
  Receipt Date: 20101025
  Transmission Date: 20110831
  Serious: No
  Sender: FDA-Public Use
  Company Number: 019465

PATIENT
  Sex: Female
  Weight: 37 kg

DRUGS (10)
  1. PREDNISONE [Concomitant]
  2. POTASSIUM CHLORIDE [Concomitant]
  3. MAGNESIUM [Concomitant]
  4. DILAUDID [Concomitant]
  5. COUMADIN [Concomitant]
  6. TRAMADOL [Concomitant]
  7. MULTIPLE VITAMINS [Concomitant]
  8. CIMZIA [Suspect]
     Indication: CROHN'S DISEASE
     Dosage: TWO SHOTS SUBCUTANEOUS
     Route: 058
     Dates: start: 20070601
  9. QVAR 40 [Concomitant]
  10. POTASSIUM [Concomitant]

REACTIONS (2)
  - INJECTION SITE URTICARIA [None]
  - INJECTION SITE PAIN [None]
